FAERS Safety Report 8163907-8 (Version None)
Quarter: 2012Q1

REPORT INFORMATION
  Report Type: 
  Country: None (occurrence: None)
  Receive Date: 20120224
  Receipt Date: 20120222
  Transmission Date: 20120608
  Serious: Yes (Other)
  Sender: FDA-Public Use
  Company Number: US-TEVA-324135USA

PATIENT
  Sex: Female

DRUGS (5)
  1. ACTIQ [Suspect]
     Indication: MIGRAINE
     Route: 002
     Dates: start: 20040101
  2. HYDROMORPHONE HCL [Suspect]
  3. FENTANYL [Suspect]
     Route: 062
  4. MORPHINE [Suspect]
  5. FENTORA [Suspect]
     Indication: MIGRAINE
     Route: 002

REACTIONS (2)
  - DRUG PRESCRIBING ERROR [None]
  - DEPENDENCE [None]
